FAERS Safety Report 16339440 (Version 1)
Quarter: 2019Q2

REPORT INFORMATION
  Report Type: Spontaneous
  Country: CA (occurrence: CA)
  Receive Date: 20190521
  Receipt Date: 20190521
  Transmission Date: 20190711
  Serious: Yes (Death, Hospitalization)
  Sender: FDA-Public Use
  Company Number: CA-PFIZER INC-2018386572

PATIENT
  Age: 55 Year
  Sex: Female

DRUGS (12)
  1. SINGULAIR [Concomitant]
     Active Substance: MONTELUKAST SODIUM
     Dosage: 10 MG, DAILY
  2. CANDESARTAN. [Concomitant]
     Active Substance: CANDESARTAN
     Dosage: 16 MG, DAILY
  3. LETROZOLE. [Concomitant]
     Active Substance: LETROZOLE
     Dosage: 2.5 MG, UNK
  4. SYMBICORT [Concomitant]
     Active Substance: BUDESONIDE\FORMOTEROL FUMARATE DIHYDRATE
     Dosage: 3 PUFFS, 2X/DAY
  5. VENTOLIN [Concomitant]
     Active Substance: ALBUTEROL SULFATE
     Dosage: UNK UNK, AS NEEDED
  6. IBRANCE [Suspect]
     Active Substance: PALBOCICLIB
     Dosage: 125 MG, CYCLIC (DAILY FOR 21 DAYS EVERY 28 DAYS)
     Route: 048
     Dates: start: 20181004, end: 201811
  7. BISOPROLOL [Concomitant]
     Active Substance: BISOPROLOL
     Dosage: 2.5 MG, DAILY
  8. COUMADIN [Concomitant]
     Active Substance: WARFARIN SODIUM
     Dosage: 7/7.5 MG, ALTERNATING
  9. LEVOTHYROXIN [Concomitant]
     Active Substance: LEVOTHYROXINE
     Dosage: 75 MG, DAILY
  10. SPIRIVA [Concomitant]
     Active Substance: TIOTROPIUM BROMIDE MONOHYDRATE
     Dosage: 2 PIFFS, DAILY
  11. B12 VITAMIN STAR [Concomitant]
     Dosage: 1200 MG, UNK
  12. CALCITROL [CALCITRIOL] [Concomitant]
     Dosage: 0.25 MG, DAILY

REACTIONS (2)
  - Death [Fatal]
  - Pneumonia [Unknown]

NARRATIVE: CASE EVENT DATE: 20181215
